FAERS Safety Report 6129141-8 (Version None)
Quarter: 2009Q1

REPORT INFORMATION
  Report Type: 
  Country: None (occurrence: None)
  Receive Date: 20090324
  Receipt Date: 20090312
  Transmission Date: 20090719
  Serious: Yes (Other)
  Sender: FDA-Public Use
  Company Number: GBWYE324323JAN06

PATIENT
  Sex: Female
  Weight: 76.5 kg

DRUGS (17)
  1. VENLAFAXINE HYDROCHLORIDE [Suspect]
     Indication: DEPRESSION
     Route: 048
     Dates: start: 20040719, end: 20060123
  2. VOLTAREN [Concomitant]
     Dosage: 50MG , FREQUENCY UNSPECIFIED
  3. LACTULOSE [Concomitant]
     Dosage: 3.35G/5ML; 5 ML BD
  4. GENTAMICIN [Concomitant]
     Dosage: 0.3%+1%, 10ML TDS
  5. LOESTRIN 1.5/30 [Concomitant]
     Dosage: DOSE UNKNOWN, ONCE DAILY
  6. LEVONELLE 2 [Concomitant]
     Route: 048
  7. LOESTRIN 1.5/30 [Concomitant]
     Dosage: UNKNOWN DOSE, ONCE DAILY
  8. NICORETTE [Concomitant]
     Dosage: 2MG PRN
  9. AMOXICILLIN [Concomitant]
  10. NICORETTE INHALATOR [Concomitant]
     Dosage: 10MG, PRN
  11. CLOTRIMAZOLE [Concomitant]
     Dosage: 1%+1%, BD 30G
  12. GAVISCON [Concomitant]
     Dosage: 500ML, AFTER MEALS
     Route: 048
  13. CO-DYDRAMOL [Concomitant]
     Dosage: UNKNOWN
     Dates: start: 20051201
  14. FLUCLOXACILLIN [Concomitant]
  15. GLYCEROL 2.6% [Concomitant]
     Dosage: DOSE UNKNOWN, FREQUENCY 1-2
     Route: 054
  16. AMOXICILLIN AND CLAVULANATE POTASSIUM [Concomitant]
     Dosage: 250/125, TDS
  17. CO-DYDRAMOL [Concomitant]
     Dosage: UNKNOWN
     Dates: start: 20051201

REACTIONS (23)
  - ARTHRALGIA [None]
  - BACK PAIN [None]
  - BIOPSY [None]
  - BLOOD ALKALINE PHOSPHATASE INCREASED [None]
  - DRUG EXPOSURE DURING PREGNANCY [None]
  - DRUG EXPOSURE VIA BREAST MILK [None]
  - FAECALOMA [None]
  - GALACTOSTASIS [None]
  - HEADACHE [None]
  - HYPOTENSION [None]
  - INFREQUENT BOWEL MOVEMENTS [None]
  - LABOUR COMPLICATION [None]
  - LACTATION DISORDER [None]
  - NIPPLE PAIN [None]
  - OEDEMA PERIPHERAL [None]
  - OTITIS EXTERNA [None]
  - PAIN [None]
  - RASH [None]
  - SCIATICA [None]
  - SKIN INFECTION [None]
  - SKIN IRRITATION [None]
  - TINEA PEDIS [None]
  - UPPER RESPIRATORY TRACT INFECTION [None]
